FAERS Safety Report 25751309 (Version 1)
Quarter: 2025Q3

REPORT INFORMATION
  Report Type: Spontaneous
  Country: US (occurrence: None)
  Receive Date: 20250901
  Receipt Date: 20250901
  Transmission Date: 20251021
  Serious: Yes (Hospitalization)
  Sender: FDA-CTU
  Company Number: None

PATIENT
  Sex: Male

DRUGS (1)
  1. LENALIDOMIDE [Suspect]
     Active Substance: LENALIDOMIDE
     Indication: Mantle cell lymphoma
     Route: 048
     Dates: start: 20250805

REACTIONS (9)
  - Fatigue [None]
  - Dyspnoea [None]
  - Diarrhoea [None]
  - Therapy change [None]
  - Fall [None]
  - Haemoglobin abnormal [None]
  - White blood cell count decreased [None]
  - Contusion [None]
  - Chest injury [None]
